FAERS Safety Report 7632115-9 (Version None)
Quarter: 2011Q3

REPORT INFORMATION
  Report Type: 
  Country: None (occurrence: None)
  Receive Date: 20110725
  Receipt Date: 20110725
  Transmission Date: 20111222
  Serious: Yes (Hospitalization)
  Sender: FDA-Public Use
  Company Number: None

PATIENT
  Age: 63 Year
  Sex: Female
  Weight: 81.646 kg

DRUGS (1)
  1. FOSAMAX [Suspect]
     Indication: OSTEOPENIA
     Dosage: 70MG
     Route: 048

REACTIONS (3)
  - STRESS FRACTURE [None]
  - FEMUR FRACTURE [None]
  - SPINAL FRACTURE [None]
